FAERS Safety Report 14692626 (Version 2)
Quarter: 2018Q1

REPORT INFORMATION
  Report Type: Spontaneous
  Country: DE (occurrence: DE)
  Receive Date: 20180329
  Receipt Date: 20180331
  Transmission Date: 20180509
  Serious: Yes (Other)
  Sender: FDA-Public Use
  Company Number: DE-CONCORDIA PHARMACEUTICALS INC.-E2B_00010741

PATIENT
  Age: 49 Year
  Sex: Female
  Weight: 65 kg

DRUGS (2)
  1. L-THYROXIN 87,5 [Concomitant]
  2. PREDNISOLONE. [Suspect]
     Active Substance: PREDNISOLONE
     Dosage: 2 TAGE JEWEILS 100 MG (5 X 20 MG),?3. TAG?80MG ?(4 X 20 MG)
     Route: 048
     Dates: start: 20170613

REACTIONS (2)
  - Atrial fibrillation [Recovered/Resolved]
  - Palpitations [Recovered/Resolved]

NARRATIVE: CASE EVENT DATE: 20170616
